FAERS Safety Report 15080130 (Version 1)
Quarter: 2018Q2

REPORT INFORMATION
  Report Type: Spontaneous
  Country: US (occurrence: US)
  Receive Date: 20180627
  Receipt Date: 20180627
  Transmission Date: 20180711
  Serious: Yes (Other)
  Sender: FDA-Public Use
  Company Number: US-ANIPHARMA-2018-US-010767

PATIENT
  Age: 59 Year
  Sex: Female
  Weight: 113.4 kg

DRUGS (19)
  1. METFORMIN ER [Concomitant]
     Active Substance: METFORMIN HYDROCHLORIDE
     Route: 048
     Dates: start: 2010
  2. METHENAMINE HIPPURATE. [Concomitant]
     Active Substance: METHENAMINE HIPPURATE
     Dosage: 1 OR 2 GRAMS DAILY
     Route: 048
     Dates: start: 2017
  3. VITAMIN C [Concomitant]
     Active Substance: ASCORBIC ACID
     Route: 048
  4. ROSUVASTATIN CALCIUM. [Suspect]
     Active Substance: ROSUVASTATIN CALCIUM
     Dosage: 10MG DAILY
     Route: 048
     Dates: start: 201801
  5. ASPIRIN. [Concomitant]
     Active Substance: ASPIRIN
     Route: 048
  6. BYETTA [Suspect]
     Active Substance: EXENATIDE
     Dosage: 10MCG TWICE DAILY
     Route: 058
     Dates: end: 20180123
  7. LISINOPRIL. [Suspect]
     Active Substance: LISINOPRIL
     Dosage: 40MG TWICE DAILY
     Route: 048
  8. HCTZ [Concomitant]
     Active Substance: HYDROCHLOROTHIAZIDE
     Route: 048
  9. WARFARIN [Concomitant]
     Active Substance: WARFARIN
     Dosage: 3.5-4 MG DAILY
     Dates: start: 2011
  10. TRAMADOL. [Concomitant]
     Active Substance: TRAMADOL
     Route: 048
  11. FLEXERIL [Concomitant]
     Active Substance: CYCLOBENZAPRINE HYDROCHLORIDE
     Route: 048
  12. SYNTHROID [Concomitant]
     Active Substance: LEVOTHYROXINE SODIUM
     Route: 048
  13. CELEBREX [Concomitant]
     Active Substance: CELECOXIB
     Route: 048
     Dates: start: 2002
  14. GLIMEPIRIDE. [Concomitant]
     Active Substance: GLIMEPIRIDE
     Route: 048
  15. VERAPAMIL [Concomitant]
     Active Substance: VERAPAMIL HYDROCHLORIDE
     Dates: start: 2008
  16. ATENOLOL. [Suspect]
     Active Substance: ATENOLOL
     Dosage: 25MG TWICE DAILY
     Route: 048
  17. ATACAND [Suspect]
     Active Substance: CANDESARTAN CILEXETIL
     Dosage: 32MG DAILY
     Route: 048
     Dates: start: 2010
  18. BYDUREON BCISE [Suspect]
     Active Substance: EXENATIDE
     Dosage: 2MG EVERY WEEK
     Route: 058
     Dates: start: 20180124
  19. OMEPRAZOLE. [Suspect]
     Active Substance: OMEPRAZOLE
     Dosage: 40MG DAILY
     Route: 048

REACTIONS (7)
  - Administration site swelling [Unknown]
  - Somnolence [Unknown]
  - Peripheral swelling [Unknown]
  - Administration site bruise [Unknown]
  - Pulmonary embolism [Unknown]
  - Hypercoagulation [Unknown]
  - Venous thrombosis limb [Unknown]

NARRATIVE: CASE EVENT DATE: 2007
